FAERS Safety Report 16273950 (Version 2)
Quarter: 2019Q2

REPORT INFORMATION
  Report Type: Spontaneous
  Country: US (occurrence: US)
  Receive Date: 20190506
  Receipt Date: 20190513
  Transmission Date: 20190711
  Serious: Yes (Other)
  Sender: FDA-Public Use
  Company Number: US-ASTRAZENECA-2019SE65053

PATIENT
  Sex: Male

DRUGS (1)
  1. LOKELMA [Suspect]
     Active Substance: SODIUM ZIRCONIUM CYCLOSILICATE
     Dosage: 10 GM THREE TIMES A WEEK
     Route: 048

REACTIONS (6)
  - Oedema [Unknown]
  - Cardiac failure [Unknown]
  - Swelling [Unknown]
  - Renal disorder [Unknown]
  - Weight increased [Unknown]
  - Blood pressure increased [Unknown]
